FAERS Safety Report 8574986-8 (Version None)
Quarter: 2012Q3

REPORT INFORMATION
  Report Type: 
  Country: None (occurrence: None)
  Receive Date: 20120807
  Receipt Date: 20120802
  Transmission Date: 20120928
  Serious: No
  Sender: FDA-Public Use
  Company Number: US-009507513-1207USA005281

PATIENT

DRUGS (7)
  1. VICTRELIS [Suspect]
     Indication: HEPATITIS C
     Dosage: 800 MG, TID
     Route: 048
     Dates: start: 20120414
  2. PEGASYS [Suspect]
     Indication: HEPATITIS C
     Dosage: 150 MICROGRAM, QW
     Dates: start: 20120303
  3. RIBASPHERE [Suspect]
     Dosage: UNK
  4. RIBASPHERE [Suspect]
     Indication: HEPATITIS C
     Dosage: 600 MG, BID
     Route: 048
     Dates: start: 20120303
  5. PRILOSEC [Concomitant]
  6. RIBASPHERE [Suspect]
     Dosage: 1200 MG, QD
  7. LISINOPRIL [Concomitant]

REACTIONS (1)
  - ANAEMIA [None]
